FAERS Safety Report 10227063 (Version 2)
Quarter: 2014Q3

REPORT INFORMATION
  Report Type: Spontaneous
  Country: US (occurrence: US)
  Receive Date: 20140610
  Receipt Date: 20140729
  Transmission Date: 20150326
  Serious: Yes (Death)
  Sender: FDA-Public Use
  Company Number: US-SHIRE-US201402773

PATIENT
  Age: 32 Year
  Sex: Female

DRUGS (1)
  1. FIRAZYR [Suspect]
     Active Substance: ICATIBANT ACETATE
     Indication: HEREDITARY ANGIOEDEMA
     Dosage: UNK, UNKNOWN
     Route: 058

REACTIONS (1)
  - Death [Fatal]

NARRATIVE: CASE EVENT DATE: 20140307
